FAERS Safety Report 4810156-4 (Version None)
Quarter: 2005Q4

REPORT INFORMATION
  Report Type: 
  Country: None (occurrence: None)
  Receive Date: 20051024
  Receipt Date: 20051011
  Transmission Date: 20060501
  Serious: Yes (Other)
  Sender: FDA-Public Use
  Company Number: 2005BH002404

PATIENT
  Sex: Male

DRUGS (4)
  1. LACTATED RINGER'S [Suspect]
     Indication: DRUG USE FOR UNKNOWN INDICATION
     Dosage: 500 ML; IV
     Route: 042
     Dates: start: 20050805
  2. AMIKACIN [Concomitant]
  3. CLINDAMINICE [Concomitant]
  4. LISALGIL [Concomitant]

REACTIONS (4)
  - DRUG HYPERSENSITIVITY [None]
  - INFUSION RELATED REACTION [None]
  - PRURITUS [None]
  - RASH [None]
